FAERS Safety Report 8051492-0 (Version None)
Quarter: 2012Q1

REPORT INFORMATION
  Report Type: 
  Country: None (occurrence: None)
  Receive Date: 20120117
  Receipt Date: 20120105
  Transmission Date: 20120608
  Serious: Yes (Hospitalization, Other)
  Sender: FDA-Public Use
  Company Number: US-ASTRAZENECA-2011SE51993

PATIENT
  Age: 53 Year
  Sex: Male
  Weight: 88.9 kg

DRUGS (16)
  1. SEROQUEL [Suspect]
     Indication: DEPRESSION
     Route: 048
     Dates: start: 20050101
  2. CYTARABINE [Suspect]
     Route: 065
  3. SEROQUEL [Suspect]
     Route: 048
  4. DOXORUBICIN HCL [Suspect]
     Route: 065
  5. VINCRISTINE [Suspect]
     Route: 065
  6. METHOTREXATE [Suspect]
     Route: 065
  7. LISINOPRIL [Concomitant]
  8. CYMBALTA [Concomitant]
  9. KLONOPIN [Concomitant]
  10. NEURONTIN [Concomitant]
  11. ULTRAM [Concomitant]
  12. CYCLOPHOSPHAMIDE [Suspect]
     Route: 065
  13. DILANTIN [Concomitant]
  14. XANAX [Concomitant]
     Indication: SLEEP DISORDER
     Dosage: PRN
  15. HYPER DEXAMETHASONE [Suspect]
     Route: 065
  16. RITUXAN [Suspect]
     Route: 065

REACTIONS (6)
  - DEPRESSION [None]
  - CHEST PAIN [None]
  - DRUG INEFFECTIVE [None]
  - MANTLE CELL LYMPHOMA [None]
  - CORONARY ARTERY OCCLUSION [None]
  - PSYCHOTIC DISORDER [None]
